FAERS Safety Report 11140964 (Version 4)
Quarter: 2017Q4

REPORT INFORMATION
  Report Type: Spontaneous
  Country: JP (occurrence: JP)
  Receive Date: 20150527
  Receipt Date: 20171003
  Transmission Date: 20180320
  Serious: Yes (Other)
  Sender: FDA-Public Use
  Company Number: PHJP2015JP008195

PATIENT
  Age: 80 Year
  Sex: Male

DRUGS (2)
  1. BENET [Suspect]
     Active Substance: RISEDRONATE SODIUM
     Indication: METASTASES TO BONE
     Dosage: UNK
     Route: 065
     Dates: start: 200911, end: 201209
  2. ZOMETA [Suspect]
     Active Substance: ZOLEDRONIC ACID
     Indication: METASTASES TO SPINE
     Dosage: UNK
     Route: 065
     Dates: start: 200907, end: 201209

REACTIONS (1)
  - Osteonecrosis of jaw [Unknown]
